FAERS Safety Report 5939667-5 (Version None)
Quarter: 2008Q4

REPORT INFORMATION
  Report Type: 
  Country: None (occurrence: None)
  Receive Date: 20081030
  Receipt Date: 20081030
  Transmission Date: 20090506
  Serious: Yes (Hospitalization)
  Sender: FDA-Public Use
  Company Number: None

PATIENT
  Age: 37 Year
  Sex: Male
  Weight: 86 kg

DRUGS (1)
  1. VANCOMYCIN [Suspect]
     Indication: EMPYEMA
     Dosage: 2 G QD X 1D IV 1.5G Q6HR X 5D IV
     Route: 042
     Dates: start: 20080910, end: 20080920

REACTIONS (2)
  - DIALYSIS [None]
  - RENAL FAILURE [None]
